FAERS Safety Report 24258409 (Version 2)
Quarter: 2024Q3

REPORT INFORMATION
  Report Type: Spontaneous
  Country: US (occurrence: None)
  Receive Date: 20240828
  Receipt Date: 20240903
  Transmission Date: 20241017
  Serious: No
  Sender: ASTRAZENECA
  Company Number: 2024A149539

PATIENT
  Age: 28310 Day
  Sex: Female

DRUGS (1)
  1. BYDUREON BCISE [Suspect]
     Active Substance: EXENATIDE
     Indication: Diabetes mellitus

REACTIONS (7)
  - Incorrect dose administered by device [Unknown]
  - Device use issue [Unknown]
  - Injection site indentation [Unknown]
  - Product administration error [Unknown]
  - Device malfunction [Unknown]
  - Blood glucose increased [Unknown]
  - Device leakage [Unknown]

NARRATIVE: CASE EVENT DATE: 20240512
